FAERS Safety Report 18080273 (Version 2)
Quarter: 2020Q3

REPORT INFORMATION
  Report Type: Report from Study
  Country: US (occurrence: US)
  Receive Date: 20200728
  Receipt Date: 20200814
  Transmission Date: 20201103
  Serious: Yes (Hospitalization, Other)
  Sender: FDA-Public Use
  Company Number: US-ACTELION-A-NJ2019-189768

PATIENT
  Age: 81 Year
  Sex: Female
  Weight: 54.88 kg

DRUGS (1)
  1. OPSUMIT [Suspect]
     Active Substance: MACITENTAN
     Indication: PULMONARY HYPERTENSION
     Dosage: 10 MG, QD
     Route: 048
     Dates: start: 20180823

REACTIONS (11)
  - Heart rate increased [Recovered/Resolved]
  - Hepatic cancer [Unknown]
  - Biopsy [Unknown]
  - Adverse event [Unknown]
  - Sensitivity to weather change [Unknown]
  - Hospice care [Unknown]
  - Nasal congestion [Unknown]
  - Procedural pain [Unknown]
  - Product dose omission issue [Recovered/Resolved]
  - Dyspnoea [Unknown]
  - Constipation [Not Recovered/Not Resolved]

NARRATIVE: CASE EVENT DATE: 20190617
